FAERS Safety Report 17870335 (Version 1)
Quarter: 2020Q2

REPORT INFORMATION
  Report Type: Spontaneous
  Country: US (occurrence: US)
  Receive Date: 20200605
  Receipt Date: 20200605
  Transmission Date: 20200714
  Serious: Yes (Life-Threatening)
  Sender: FDA-Public Use
  Company Number: None

PATIENT
  Age: 26 Year
  Sex: Male
  Weight: 48.15 kg

DRUGS (14)
  1. VIT D [Concomitant]
     Active Substance: VITAMIN D NOS
  2. LIPOSOMAL [Concomitant]
     Active Substance: AMPHOTERICIN B
  3. ADRENAL [Concomitant]
     Active Substance: EPINEPHRINE
  4. FISH OIL [Concomitant]
     Active Substance: FISH OIL
  5. ENTRAPENEM IV [Concomitant]
  6. CHRONIC GONADOTROPIN [Concomitant]
  7. VITAMIN B12 [Concomitant]
     Active Substance: CYANOCOBALAMIN
  8. ANASTROZOLE. [Concomitant]
     Active Substance: ANASTROZOLE
  9. TESTOSTERONE. [Concomitant]
     Active Substance: TESTOSTERONE
  10. VIT C WITH BIOFLAVANOIDS [Concomitant]
  11. OXYCODONE [Concomitant]
     Active Substance: OXYCODONE
  12. K2 [Concomitant]
     Active Substance: JWH-018
  13. FERAHEME [Suspect]
     Active Substance: FERUMOXYTOL NON-STOICHIOMETRIC MAGNETITE
     Indication: ANAEMIA MACROCYTIC
     Route: 042
  14. THYROID SUPPORT [Concomitant]
     Active Substance: HOMEOPATHICS

REACTIONS (7)
  - Dyspnoea [None]
  - Contraindicated product administered [None]
  - Infusion related reaction [None]
  - Device monitoring procedure not performed [None]
  - Chest discomfort [None]
  - Visual impairment [None]
  - Body temperature increased [None]

NARRATIVE: CASE EVENT DATE: 20200602
